FAERS Safety Report 16668094 (Version 2)
Quarter: 2019Q3

REPORT INFORMATION
  Report Type: Spontaneous
  Country: TR (occurrence: TR)
  Receive Date: 20190805
  Receipt Date: 20190903
  Transmission Date: 20191004
  Serious: Yes (Other)
  Sender: FDA-Public Use
  Company Number: PHHY2019TR181094

PATIENT
  Age: 42 Year
  Sex: Female

DRUGS (2)
  1. TRILEPTAL [Suspect]
     Active Substance: OXCARBAZEPINE
     Indication: EPILEPSY
     Dosage: UNK
     Route: 065
  2. TEGRETOL [Suspect]
     Active Substance: CARBAMAZEPINE
     Indication: EPILEPSY
     Dosage: UNK UNK, BID (MORNING AND EVENING)
     Route: 048
     Dates: start: 20190727

REACTIONS (17)
  - Cerebral disorder [Unknown]
  - Vomiting [Recovered/Resolved]
  - Seizure [Recovering/Resolving]
  - Burning sensation [Recovered/Resolved]
  - Feeling abnormal [Unknown]
  - Suicidal ideation [Unknown]
  - Drug ineffective [Recovered/Resolved]
  - Lacrimation increased [Recovered/Resolved]
  - Fatigue [Unknown]
  - Trismus [Unknown]
  - Eyelash discolouration [Unknown]
  - Nausea [Recovered/Resolved]
  - Lethargy [Unknown]
  - Headache [Unknown]
  - Epilepsy [Unknown]
  - Hypoaesthesia [Recovered/Resolved]
  - Feeling cold [Unknown]

NARRATIVE: CASE EVENT DATE: 20190729
